FAERS Safety Report 6726105-8 (Version None)
Quarter: 2010Q2

REPORT INFORMATION
  Report Type: 
  Country: None (occurrence: None)
  Receive Date: 20100514
  Receipt Date: 20100510
  Transmission Date: 20101027
  Serious: Yes (Other)
  Sender: FDA-Public Use
  Company Number: US-PFIZER INC-2010041550

PATIENT
  Sex: Female

DRUGS (2)
  1. ZOLOFT [Suspect]
     Indication: DEPRESSION
     Dosage: 100 MG, 1X/DAY
     Route: 048
     Dates: start: 20090529
  2. ZOLOFT [Suspect]
     Indication: DYSTHYMIC DISORDER

REACTIONS (8)
  - ANGER [None]
  - BIPOLAR DISORDER [None]
  - DEPRESSED MOOD [None]
  - DRUG EFFECT DECREASED [None]
  - IRRITABILITY [None]
  - MANIA [None]
  - SLEEP DISORDER [None]
  - WRONG TECHNIQUE IN DRUG USAGE PROCESS [None]
